FAERS Safety Report 21442659 (Version 3)
Quarter: 2022Q4

REPORT INFORMATION
  Report Type: Spontaneous
  Country: US (occurrence: US)
  Receive Date: 20221012
  Receipt Date: 20221128
  Transmission Date: 20230113
  Serious: Yes (Other)
  Sender: FDA-Public Use
  Company Number: US-BEH-2022150628

PATIENT
  Sex: Male

DRUGS (2)
  1. PRIVIGEN [Suspect]
     Active Substance: HUMAN IMMUNOGLOBULIN G
     Indication: Dermatomyositis
     Dosage: 100 GRAM, DAILY FOR 2 DAYS EVERY 4 WEEKS
     Route: 042
     Dates: start: 202209
  2. PRIVIGEN [Suspect]
     Active Substance: HUMAN IMMUNOGLOBULIN G
     Dosage: 100 GRAM, DAILY FOR 2 DAYS EVERY 4 WEEKS
     Route: 042
     Dates: start: 202208

REACTIONS (6)
  - Wrist fracture [Unknown]
  - Decreased activity [Unknown]
  - Weight increased [Unknown]
  - No adverse event [Unknown]
  - Off label use [Unknown]
  - Weight decreased [Unknown]
